FAERS Safety Report 4392177-1 (Version None)
Quarter: 2004Q3

REPORT INFORMATION
  Report Type: 
  Country: None (occurrence: None)
  Receive Date: 20040702
  Receipt Date: 20040510
  Transmission Date: 20050211
  Serious: Yes (Other)
  Sender: FDA-Public Use
  Company Number: 2004UW02581

PATIENT
  Age: 79 Year
  Sex: Female
  Weight: 71.6683 kg

DRUGS (3)
  1. CRESTOR [Suspect]
     Indication: BLOOD CHOLESTEROL INCREASED
     Dosage: 10 MG PO
     Route: 048
  2. CRESTOR [Suspect]
     Indication: BLOOD CHOLESTEROL INCREASED
     Dosage: 10 MG PO
     Route: 048
     Dates: start: 20040101
  3. NOSE DROPS [Concomitant]

REACTIONS (3)
  - FATIGUE [None]
  - POLLAKIURIA [None]
  - WEIGHT INCREASED [None]
